FAERS Safety Report 9147309 (Version 1)
Quarter: 2013Q1

REPORT INFORMATION
  Report Type: Spontaneous
  Country: US (occurrence: US)
  Receive Date: 20130307
  Receipt Date: 20130307
  Transmission Date: 20140127
  Serious: Yes (Hospitalization)
  Sender: FDA-Public Use
  Company Number: US-009507513-1303USA001879

PATIENT
  Age: 65 Year
  Sex: Female

DRUGS (10)
  1. SINGULAIR [Suspect]
  2. CRESTOR [Concomitant]
     Route: 048
  3. SYMBICORT [Concomitant]
     Dosage: INHALATION
     Route: 055
  4. ALBUTEROL [Concomitant]
     Route: 048
  5. ADVAIR [Concomitant]
  6. ANTIMICROBIAL (UNSPECIFIED) [Concomitant]
     Route: 042
  7. CORTICOSTEROIDS (UNSPECIFIED) [Concomitant]
  8. ACIPHEX [Concomitant]
  9. SYNTHROID [Concomitant]
  10. TOPAMAX [Concomitant]
     Indication: ASTHMA
     Route: 065

REACTIONS (4)
  - Urinary retention [Unknown]
  - Nausea [Unknown]
  - Asthma [Unknown]
  - Abdominal pain [Unknown]
